FAERS Safety Report 8061014-6 (Version None)
Quarter: 2012Q1

REPORT INFORMATION
  Report Type: 
  Country: None (occurrence: None)
  Receive Date: 20120120
  Receipt Date: 20111229
  Transmission Date: 20120608
  Serious: Yes (Hospitalization)
  Sender: FDA-Public Use
  Company Number: CHPA2011US018811

PATIENT
  Age: 48 Year
  Sex: Female

DRUGS (1)
  1. EXCEDRIN EXTRA STRENGTH TABLETS [Suspect]
     Indication: HEADACHE
     Dosage: 1 DF, PRN
     Route: 048
     Dates: start: 20000101

REACTIONS (8)
  - SPINAL FRACTURE [None]
  - MULTIPLE FRACTURES [None]
  - BRAIN INJURY [None]
  - ROAD TRAFFIC ACCIDENT [None]
  - ARTERIAL INJURY [None]
  - UNDERDOSE [None]
  - DRUG INEFFECTIVE [None]
  - PNEUMOTHORAX [None]
